FAERS Safety Report 21723503 (Version 4)
Quarter: 2023Q2

REPORT INFORMATION
  Report Type: Report from Study
  Country: JP (occurrence: JP)
  Receive Date: 20221213
  Receipt Date: 20230616
  Transmission Date: 20230721
  Serious: Yes (Death)
  Sender: FDA-Public Use
  Company Number: JP-ABBVIE-4129992

PATIENT
  Age: 64 Year
  Sex: Female
  Weight: 46 kg

DRUGS (2)
  1. RINVOQ [Suspect]
     Active Substance: UPADACITINIB
     Indication: Rheumatoid arthritis
     Dosage: FORM STRENGTH:15 MILLIGRAM
     Route: 048
     Dates: start: 20210519, end: 20211118
  2. DENOSUMAB [Concomitant]
     Active Substance: DENOSUMAB
     Indication: Rheumatoid arthritis
     Dosage: GENETICAL RECOMBINATION
     Route: 058

REACTIONS (1)
  - Malignant ascites [Fatal]

NARRATIVE: CASE EVENT DATE: 20210101
